FAERS Safety Report 4877217-5 (Version None)
Quarter: 2005Q4

REPORT INFORMATION
  Report Type: 
  Country: None (occurrence: None)
  Receive Date: 20051206
  Receipt Date: 20050926
  Transmission Date: 20060501
  Serious: Yes (Other)
  Sender: FDA-Public Use
  Company Number: USA0509109453

PATIENT
  Age: 70 Year
  Sex: Female

DRUGS (6)
  1. CYMBALTA [Suspect]
     Indication: BACK PAIN
     Dosage: 20 MG
     Dates: start: 20050908, end: 20050914
  2. NEURONTIN [Concomitant]
  3. MOTRIN [Concomitant]
  4. FOSAMAX [Concomitant]
  5. SYNTHROID [Concomitant]
  6. OXYCONTIN [Concomitant]

REACTIONS (1)
  - HYPONATRAEMIA [None]
